FAERS Safety Report 6637642-9 (Version None)
Quarter: 2010Q1

REPORT INFORMATION
  Report Type: 
  Country: None (occurrence: None)
  Receive Date: 20100315
  Receipt Date: 20100315
  Transmission Date: 20100710
  Serious: No
  Sender: FDA-Public Use
  Company Number: None

PATIENT
  Sex: Female

DRUGS (1)
  1. KLOR-CON [Suspect]
     Dosage: 20 MEQ DAILY ORAL
     Route: 048

REACTIONS (1)
  - PRODUCT FORMULATION ISSUE [None]
